FAERS Safety Report 5095244-2 (Version None)
Quarter: 2006Q3

REPORT INFORMATION
  Report Type: 
  Country: None (occurrence: None)
  Receive Date: 20060901
  Receipt Date: 20060828
  Transmission Date: 20061208
  Serious: Yes (Life-Threatening, Hospitalization)
  Sender: FDA-Public Use
  Company Number: PHBS2006FI12926

PATIENT
  Age: 42 Year
  Sex: Female

DRUGS (8)
  1. LEPONEX [Suspect]
     Indication: SCHIZOPHRENIA, PARANOID TYPE
     Dosage: 600 MG/D
     Route: 048
     Dates: start: 20020101, end: 20060811
  2. FEMILAR [Concomitant]
     Route: 065
  3. KALCIPOS [Concomitant]
     Dosage: 1 TABLET/D
     Route: 048
  4. TENOX [Concomitant]
     Dosage: 20 MG/D
     Route: 048
  5. TEMESTA [Concomitant]
     Dosage: 4 MG/D
     Route: 048
  6. ATARAX [Concomitant]
     Dosage: 25 MG, IF NEEDED
     Route: 048
  7. NEXIUM [Concomitant]
     Dosage: 40 MG/D
     Route: 048
  8. GAVISCON [Concomitant]
     Dosage: 20 ML/D
     Route: 048

REACTIONS (3)
  - ABDOMINAL PAIN UPPER [None]
  - LEUKOCYTOSIS [None]
  - NEUTROPENIA [None]
